FAERS Safety Report 5239502-7 (Version None)
Quarter: 2007Q1

REPORT INFORMATION
  Report Type: 
  Country: None (occurrence: None)
  Receive Date: 20070216
  Receipt Date: 20070212
  Transmission Date: 20070707
  Serious: Yes (Other)
  Sender: FDA-Public Use
  Company Number: US-ALLERGAN-0701495US

PATIENT
  Age: 46 Year
  Sex: Male

DRUGS (1)
  1. BOTOX COSMETIC [Suspect]
     Indication: SKIN WRINKLING
     Dosage: UNK, SINGLE
     Route: 030
     Dates: start: 20060801, end: 20060801

REACTIONS (4)
  - CONVULSION [None]
  - CSF WHITE BLOOD CELL COUNT INCREASED [None]
  - MUSCULOSKELETAL PAIN [None]
  - WHITE BLOOD CELL COUNT INCREASED [None]
